FAERS Safety Report 13220112 (Version 1)
Quarter: 2017Q1

REPORT INFORMATION
  Report Type: Spontaneous
  Country: AU (occurrence: AU)
  Receive Date: 20170210
  Receipt Date: 20170210
  Transmission Date: 20170428
  Serious: Yes (Other)
  Sender: FDA-Public Use
  Company Number: AU-TORRENT-00000042

PATIENT
  Sex: Male

DRUGS (15)
  1. AMINOPHYLLINE. [Concomitant]
     Active Substance: AMINOPHYLLINE
  2. ACETYLSALICYLIC ACID [Concomitant]
     Active Substance: ASPIRIN
  3. PAROXETINE. [Concomitant]
     Active Substance: PAROXETINE
  4. AVAPRO [Concomitant]
     Active Substance: IRBESARTAN
  5. COGENTIN [Concomitant]
     Active Substance: BENZTROPINE MESYLATE
  6. OLANZAPINE. [Suspect]
     Active Substance: OLANZAPINE
  7. BICOR [Concomitant]
     Active Substance: BISOPROLOL FUMARATE
  8. NEXIUM [Concomitant]
     Active Substance: ESOMEPRAZOLE MAGNESIUM
  9. VIAGRA [Concomitant]
     Active Substance: SILDENAFIL CITRATE
  10. AROPAX [Concomitant]
     Active Substance: PAROXETINE HYDROCHLORIDE
  11. INVEGA [Concomitant]
     Active Substance: PALIPERIDONE
  12. CLOZAPINE. [Suspect]
     Active Substance: CLOZAPINE
  13. SEROQUEL [Suspect]
     Active Substance: QUETIAPINE FUMARATE
  14. PERSANTIN [Concomitant]
     Active Substance: DIPYRIDAMOLE
  15. CRESTOR [Concomitant]
     Active Substance: ROSUVASTATIN CALCIUM

REACTIONS (24)
  - Ventricular hypokinesia [Unknown]
  - Diastolic dysfunction [Unknown]
  - Bundle branch block left [Unknown]
  - Ischaemic cardiomyopathy [Unknown]
  - Mitral valve incompetence [Unknown]
  - Schizophrenia [Unknown]
  - Congestive cardiomyopathy [Unknown]
  - Left ventricular dysfunction [Unknown]
  - Blood triglycerides increased [Unknown]
  - Myocardial infarction [Unknown]
  - Ejection fraction decreased [Unknown]
  - Exercise tolerance decreased [Unknown]
  - Supraventricular extrasystoles [Unknown]
  - Blood cholesterol decreased [Unknown]
  - Total cholesterol/HDL ratio increased [Unknown]
  - Electrocardiogram PR prolongation [Unknown]
  - Coronary artery disease [Unknown]
  - Globulins decreased [Unknown]
  - Mean cell volume abnormal [Unknown]
  - Cardiac septal hypertrophy [Unknown]
  - Blood sodium increased [Unknown]
  - Blood urea decreased [Unknown]
  - High density lipoprotein decreased [Unknown]
  - Alanine aminotransferase increased [Unknown]
